FAERS Safety Report 21649921 (Version 1)
Quarter: 2022Q4

REPORT INFORMATION
  Report Type: Spontaneous
  Country: CA (occurrence: CA)
  Receive Date: 20221128
  Receipt Date: 20221128
  Transmission Date: 20230112
  Serious: Yes (Hospitalization)
  Sender: FDA-Public Use
  Company Number: CA-TEVA-2022-CA-2830526

PATIENT
  Age: 92 Year
  Sex: Male

DRUGS (1)
  1. BISOPROLOL FUMARATE [Suspect]
     Active Substance: BISOPROLOL FUMARATE
     Indication: Angina pectoris
     Route: 065

REACTIONS (2)
  - Bradycardia [Unknown]
  - Hypertensive emergency [Unknown]
